FAERS Safety Report 16197152 (Version 7)
Quarter: 2022Q3

REPORT INFORMATION
  Report Type: Spontaneous
  Country: US (occurrence: US)
  Receive Date: 20190415
  Receipt Date: 20220810
  Transmission Date: 20221027
  Serious: No
  Sender: FDA-Public Use
  Company Number: US-PFIZER INC-2018330894

PATIENT
  Age: 68 Year
  Sex: Female
  Weight: 56.689 kg

DRUGS (8)
  1. XELJANZ XR [Suspect]
     Active Substance: TOFACITINIB CITRATE
     Indication: Rheumatoid arthritis
     Dosage: 11 MG, ONCE A DAY
     Route: 048
  2. XELJANZ XR [Suspect]
     Active Substance: TOFACITINIB CITRATE
     Dosage: 11 MG, ONCE A DAY
     Route: 048
     Dates: end: 20200224
  3. XELJANZ XR [Suspect]
     Active Substance: TOFACITINIB CITRATE
     Dosage: 11 MG TAKE WITH 8 OUNCES OF WATER ONCE A DAY
  4. METFORMIN [Concomitant]
     Active Substance: METFORMIN HYDROCHLORIDE
     Indication: Diabetes mellitus
     Dosage: 500 MG, 2X/DAY (DOSAGE: TWO 500MG TABLETS IN THE MORNING AND TWO 500MG TABLETS AT NIGHT)
  5. LISINOPRIL [Concomitant]
     Active Substance: LISINOPRIL
     Indication: Protein deficiency
     Dosage: 10 MG, 1X/DAY (DOSAGE: 10MG TABLET BY MOUTH ONCE A DAY)
     Route: 048
  6. PRAVASTATIN SODIUM [Concomitant]
     Active Substance: PRAVASTATIN SODIUM
     Indication: Blood cholesterol increased
     Dosage: 40 MG, DAILY (DOSAGE: 40MG TABLET BY MOUTH ONCE DAILY)
     Route: 048
  7. TRAMADOL HCL [Concomitant]
     Active Substance: TRAMADOL HYDROCHLORIDE
     Indication: Pain
     Dosage: 50 MG, 4X/DAY (DOSAGE: 50MG TABLET BY MOUTH EVERY SIX HOURS)
  8. LATANOPROST [Concomitant]
     Active Substance: LATANOPROST
     Indication: Glaucoma
     Dosage: 2 DROP, 1X/DAY (DOSAGE: 1 DROP PER EYE PER EVENING)

REACTIONS (8)
  - Sinusitis [Recovering/Resolving]
  - Herpes zoster [Recovered/Resolved]
  - Scab [Unknown]
  - Peripheral swelling [Unknown]
  - Condition aggravated [Unknown]
  - Memory impairment [Not Recovered/Not Resolved]
  - Product dose omission issue [Recovered/Resolved]
  - Movement disorder [Recovered/Resolved]

NARRATIVE: CASE EVENT DATE: 20210101
